FAERS Safety Report 24733878 (Version 1)
Quarter: 2024Q4

REPORT INFORMATION
  Report Type: Spontaneous
  Country: JP (occurrence: JP)
  Receive Date: 20241214
  Receipt Date: 20241214
  Transmission Date: 20250114
  Serious: Yes (Hospitalization)
  Sender: BRISTOL-MYERS SQUIBB COMPANY
  Company Number: JP-BRISTOL-MYERS SQUIBB COMPANY-2024-191485

PATIENT
  Age: 40 Year

DRUGS (4)
  1. SOTYKTU [Suspect]
     Active Substance: DEUCRAVACITINIB
     Indication: Pustular psoriasis
     Dosage: DOSE : 6MG;     FREQ : ONCE/DAY
     Route: 048
     Dates: start: 20241107, end: 20241125
  2. PREDNISOLONE [Suspect]
     Active Substance: PREDNISOLONE
     Indication: Generalised pustular psoriasis
     Route: 048
     Dates: start: 20241024, end: 20241106
  3. PREDNISOLONE [Suspect]
     Active Substance: PREDNISOLONE
     Route: 048
     Dates: start: 20241107, end: 20241125
  4. SPEVIGO [Concomitant]
     Active Substance: SPESOLIMAB-SBZO
     Indication: Generalised pustular psoriasis
     Route: 042
     Dates: start: 20241024, end: 20241031

REACTIONS (1)
  - Cellulitis [Recovering/Resolving]

NARRATIVE: CASE EVENT DATE: 20241125
